FAERS Safety Report 4840147-9 (Version None)
Quarter: 2005Q4

REPORT INFORMATION
  Report Type: 
  Country: None (occurrence: None)
  Receive Date: 20051125
  Receipt Date: 20051110
  Transmission Date: 20060501
  Serious: Yes (Other)
  Sender: FDA-Public Use
  Company Number: 2005154195

PATIENT
  Age: 68 Year
  Sex: Male
  Weight: 79.8331 kg

DRUGS (5)
  1. SUDAFED (PSEUDOEPHEDRINE) [Suspect]
     Indication: NASAL CONGESTION
     Dosage: 1 TABLET ONCE DAILY PRN, ORAL
     Route: 048
     Dates: start: 19850101, end: 20050101
  2. OMEPRAZOLE [Concomitant]
  3. ASPIRIN [Concomitant]
  4. FLUVASTATIN SODIUM (FLUVASTATIN SODIUM) [Concomitant]
  5. CLORAZEPATE DIPOTASSIUM [Concomitant]

REACTIONS (2)
  - BENIGN PROSTATIC HYPERPLASIA [None]
  - DYSURIA [None]
